FAERS Safety Report 7227642-2 (Version None)
Quarter: 2011Q1

REPORT INFORMATION
  Report Type: 
  Country: None (occurrence: None)
  Receive Date: 20110114
  Receipt Date: 20110106
  Transmission Date: 20110831
  Serious: No
  Sender: FDA-Public Use
  Company Number: US-PFIZER INC-2011004281

PATIENT
  Sex: Female
  Weight: 72.562 kg

DRUGS (4)
  1. LYRICA [Suspect]
     Indication: NERVE INJURY
     Dosage: 75 MG, 2X/DAY
     Route: 048
     Dates: start: 20100701
  2. LYRICA [Suspect]
     Indication: BURNING SENSATION
  3. QUINAPRIL [Concomitant]
     Indication: HYPERTENSION
     Dosage: UNK
  4. LYRICA [Suspect]
     Indication: PAIN

REACTIONS (1)
  - WEIGHT INCREASED [None]
